FAERS Safety Report 9340512 (Version 1)
Quarter: 2013Q2

REPORT INFORMATION
  Report Type: Spontaneous
  Country: BE (occurrence: BE)
  Receive Date: 20130610
  Receipt Date: 20130610
  Transmission Date: 20140414
  Serious: Yes (Other)
  Sender: FDA-Public Use
  Company Number: BE-JNJFOC-20130604063

PATIENT
  Age: 73 Year
  Sex: Female

DRUGS (1)
  1. ZALDIAR [Suspect]
     Indication: PRODUCT USED FOR UNKNOWN INDICATION
     Route: 048
     Dates: start: 2010, end: 2013

REACTIONS (4)
  - Coma [Unknown]
  - Somnolence [Unknown]
  - Confusional state [Unknown]
  - Disorientation [Unknown]
